FAERS Safety Report 5403344-X (Version None)
Quarter: 2007Q3

REPORT INFORMATION
  Report Type: 
  Country: None (occurrence: None)
  Receive Date: 20070801
  Receipt Date: 20070730
  Transmission Date: 20080115
  Serious: Yes (Other)
  Sender: FDA-Public Use
  Company Number: MX-MERCK-0707MEX00021

PATIENT
  Age: 60 Year
  Sex: Male
  Weight: 80 kg

DRUGS (10)
  1. CANCIDAS [Suspect]
     Indication: RESPIRATORY MONILIASIS
     Route: 042
     Dates: start: 20070717, end: 20070723
  2. CANCIDAS [Suspect]
     Indication: URINARY TRACT INFECTION FUNGAL
     Route: 042
     Dates: start: 20070717, end: 20070723
  3. FUROSEMIDE [Concomitant]
     Indication: RENAL FAILURE
     Route: 042
     Dates: start: 20070710
  4. OMEPRAZOLE [Concomitant]
     Indication: PROPHYLAXIS AGAINST GASTROINTESTINAL ULCER
     Route: 042
     Dates: start: 20070710
  5. CEFTRIAXONE SODIUM [Concomitant]
     Indication: PNEUMONIA
     Route: 042
     Dates: start: 20070710
  6. AMIKACIN [Concomitant]
     Indication: PNEUMONIA
     Route: 042
     Dates: start: 20070710
  7. CLONIXIN LYSINE [Concomitant]
     Indication: ANALGESIA
     Route: 042
     Dates: start: 20070710, end: 20070715
  8. BUTILHIOSCINA [Concomitant]
     Indication: ABDOMINAL PAIN
     Route: 042
     Dates: start: 20070713, end: 20070715
  9. NIMESULIDE [Concomitant]
     Indication: INFECTION
     Route: 065
  10. NIMESULIDE [Concomitant]
     Route: 042
     Dates: start: 20070713

REACTIONS (1)
  - JAUNDICE [None]
